FAERS Safety Report 7457414-5 (Version None)
Quarter: 2011Q2

REPORT INFORMATION
  Report Type: 
  Country: None (occurrence: None)
  Receive Date: 20110503
  Receipt Date: 20110503
  Transmission Date: 20111010
  Serious: Yes (Other)
  Sender: FDA-Public Use
  Company Number: None

PATIENT
  Age: 59 Year
  Sex: Female

DRUGS (1)
  1. ALLEGRA [Suspect]
     Indication: SEASONAL ALLERGY
     Dosage: 180 MG 1QD PO
     Route: 048
     Dates: start: 20110418, end: 20110422

REACTIONS (2)
  - LETHARGY [None]
  - IMPAIRED DRIVING ABILITY [None]
